FAERS Safety Report 16811644 (Version 1)
Quarter: 2019Q3

REPORT INFORMATION
  Report Type: Spontaneous
  Country: US (occurrence: US)
  Receive Date: 20190916
  Receipt Date: 20190916
  Transmission Date: 20191005
  Serious: Yes (Other)
  Sender: FDA-Public Use
  Company Number: US-MYLANLABS-2019M1084823

PATIENT
  Sex: Female
  Weight: 112 kg

DRUGS (2)
  1. ADVIL (MEFENAMIC ACID) [Concomitant]
     Active Substance: MEFENAMIC ACID
     Dosage: UNK UNK, PRN
  2. FENTANYL. [Suspect]
     Active Substance: FENTANYL
     Indication: CANCER PAIN
     Dosage: 1 DOSAGE FORM, Q3D
     Route: 062

REACTIONS (1)
  - Drug ineffective [Not Recovered/Not Resolved]
